FAERS Safety Report 26173026 (Version 2)
Quarter: 2025Q4

REPORT INFORMATION
  Report Type: Spontaneous
  Country: US (occurrence: US)
  Receive Date: 20251218
  Receipt Date: 20251231
  Transmission Date: 20260118
  Serious: No
  Sender: BIOVITRUM
  Company Number: US-BIOVITRUM-2025-US-017330

PATIENT
  Age: 81 Year
  Sex: Male

DRUGS (7)
  1. VONJO [Suspect]
     Active Substance: PACRITINIB
     Indication: Monoclonal gammopathy
     Dosage: TWICE DAILY
     Route: 048
     Dates: start: 20251002
  2. CLOTRIMAZOLE EXTERNAL CREAM 1 % [Concomitant]
     Indication: Product used for unknown indication
  3. SULFAMETHOXAZOLE\TRIMETHOPRIM [Concomitant]
     Active Substance: SULFAMETHOXAZOLE\TRIMETHOPRIM
     Indication: Product used for unknown indication
  4. ACYCLOVIR [Concomitant]
     Active Substance: ACYCLOVIR
     Indication: Product used for unknown indication
  5. HERBALS\SAW PALMETTO [Concomitant]
     Active Substance: HERBALS\SAW PALMETTO
     Indication: Product used for unknown indication
  6. RETACRIT INJECTION [Concomitant]
     Indication: Product used for unknown indication
  7. SULFAMETHOXAZOLE AND TRIMETHOPRIM [Concomitant]
     Active Substance: SULFAMETHOXAZOLE\TRIMETHOPRIM
     Indication: Product used for unknown indication

REACTIONS (7)
  - Anaemia [Not Recovered/Not Resolved]
  - Rash [Unknown]
  - Platelet count decreased [Not Recovered/Not Resolved]
  - Off label use [Not Recovered/Not Resolved]
  - Cough [Unknown]
  - Peripheral swelling [Unknown]
  - Vision blurred [Unknown]

NARRATIVE: CASE EVENT DATE: 20251002
